FAERS Safety Report 19155273 (Version 3)
Quarter: 2021Q2

REPORT INFORMATION
  Report Type: Spontaneous
  Country: DE (occurrence: DE)
  Receive Date: 20210420
  Receipt Date: 20210614
  Transmission Date: 20210717
  Serious: Yes (Hospitalization, Other)
  Sender: FDA-Public Use
  Company Number: DE-B.I. PHARMACEUTICALS,INC./RIDGEFIELD-2021-BI-096341

PATIENT
  Age: 62 Year
  Sex: Female
  Weight: 65 kg

DRUGS (12)
  1. MOCLOBEMIDE [Suspect]
     Active Substance: MOCLOBEMIDE
     Indication: DEPRESSIVE SYMPTOM
     Dosage: 150 MG, PER DAY
  2. MOCLOBEMIDE [Suspect]
     Active Substance: MOCLOBEMIDE
     Dosage: 450 MILLIGRAM, QD
     Route: 065
  3. RANOLAZINE. [Suspect]
     Active Substance: RANOLAZINE
     Indication: ANGINA PECTORIS
     Dosage: 375 MG, PER DAY
  4. RANOLAZINE. [Suspect]
     Active Substance: RANOLAZINE
     Indication: HYPERTENSION
  5. AGOMELATINE [Suspect]
     Active Substance: AGOMELATINE
     Indication: INSOMNIA
     Dosage: 50 MG, PER DAY
  6. LEVODOPA/BENSERAZIDE [Suspect]
     Active Substance: BENSERAZIDE\LEVODOPA
     Dosage: 125 MG, 3X PER DAY
  7. LEVOTHYROXINE. [Suspect]
     Active Substance: LEVOTHYROXINE
     Indication: HYPOTHYROIDISM
     Dosage: 100 UG, PER DAY
  8. MIRTAZAPINE. [Suspect]
     Active Substance: MIRTAZAPINE
     Indication: INSOMNIA
  9. TRAZODONE [Suspect]
     Active Substance: TRAZODONE HYDROCHLORIDE
     Indication: INSOMNIA
  10. LEVODOPA/BENSERAZIDE [Suspect]
     Active Substance: BENSERAZIDE\LEVODOPA
     Indication: PARKINSON^S DISEASE
     Dosage: 200/50 MG/MG PER DAY (RETARD)
  11. SIFROL [Suspect]
     Active Substance: PRAMIPEXOLE
     Indication: PARKINSON^S DISEASE
     Dosage: 0.525 MG, PER DAY
  12. RASAGILINE. [Suspect]
     Active Substance: RASAGILINE
     Indication: PARKINSON^S DISEASE
     Dosage: 1 MG, PER DAY

REACTIONS (9)
  - Drug interaction [Unknown]
  - Serotonin syndrome [Recovered/Resolved]
  - Serum serotonin increased [Recovered/Resolved]
  - Drug ineffective for unapproved indication [Unknown]
  - Drug intolerance [Unknown]
  - Condition aggravated [Recovered/Resolved]
  - Autonomic nervous system imbalance [Recovering/Resolving]
  - Toxicity to various agents [Recovering/Resolving]
  - Drug ineffective [Unknown]
